FAERS Safety Report 17591145 (Version 4)
Quarter: 2020Q2

REPORT INFORMATION
  Report Type: Spontaneous
  Country: US (occurrence: US)
  Receive Date: 20200327
  Receipt Date: 20200521
  Transmission Date: 20200713
  Serious: No
  Sender: FDA-Public Use
  Company Number: US-PFIZER INC-2020039507

PATIENT
  Age: 54 Year
  Sex: Female
  Weight: 74.39 kg

DRUGS (3)
  1. LYRICA [Suspect]
     Active Substance: PREGABALIN
     Indication: SPINAL STENOSIS
     Dosage: 100 MG, TWICE A DAY
     Route: 048
     Dates: start: 201505
  2. LYRICA [Suspect]
     Active Substance: PREGABALIN
     Indication: SPINAL CORD INJURY
  3. LYRICA [Suspect]
     Active Substance: PREGABALIN
     Indication: CERVICAL VERTEBRAL FRACTURE

REACTIONS (1)
  - Pain in extremity [Not Recovered/Not Resolved]
